FAERS Safety Report 9306660 (Version 1)
Quarter: 2013Q2

REPORT INFORMATION
  Report Type: Spontaneous
  Country: US (occurrence: US)
  Receive Date: 20130523
  Receipt Date: 20130523
  Transmission Date: 20140414
  Serious: Yes (Hospitalization, Other)
  Sender: FDA-Public Use
  Company Number: US-ALEXION-A201300777

PATIENT
  Age: 34 Year
  Sex: Female
  Weight: 115 kg

DRUGS (14)
  1. SOLIRIS 300MG [Suspect]
     Indication: PAROXYSMAL NOCTURNAL HAEMOGLOBINURIA
     Dosage: 1200 MG, Q2W
     Route: 042
  2. EXJADE [Concomitant]
     Dosage: 2000 MG, QD
  3. CARVEDILOL [Concomitant]
     Dosage: 12.5 MG, BID
  4. CARAFATE [Concomitant]
     Dosage: UNK, QID
  5. ARIXTRA [Concomitant]
     Dosage: 7.5 MG, UNK
  6. ZOLPIDEM [Concomitant]
     Dosage: 10 MG, QD AT HS
  7. ATIVAN [Concomitant]
     Dosage: 1 MG TID, PRN
  8. CYCLOBENZAPRINE [Concomitant]
     Dosage: 10 MG, TID
  9. DILAUDID [Concomitant]
     Dosage: 2 MG, PRN
  10. HYDROCODONE [Concomitant]
     Dosage: UNK, PRN
  11. MECLIZINE [Concomitant]
     Dosage: 25 MG, QD
  12. NEXIUM [Concomitant]
     Dosage: 40 MG, UNK
  13. PROMETHAZINE [Concomitant]
     Dosage: 25 MG, PRN
  14. TRAMADOL [Concomitant]
     Dosage: 50 MG, 1-2 EVERY 6 HOURS PRN

REACTIONS (5)
  - Dyspnoea exertional [Recovered/Resolved]
  - Anaemia [Recovered/Resolved]
  - Asthenia [Recovered/Resolved]
  - Fatigue [Recovered/Resolved]
  - Nausea [Recovered/Resolved]
